FAERS Safety Report 12826115 (Version 1)
Quarter: 2016Q4

REPORT INFORMATION
  Report Type: Spontaneous
  Country: US (occurrence: US)
  Receive Date: 20161006
  Receipt Date: 20161006
  Transmission Date: 20170207
  Serious: No
  Sender: FDA-Public Use
  Company Number: US-JAZZ-2016-US-012571

PATIENT
  Sex: Female
  Weight: 58.5 kg

DRUGS (27)
  1. XYREM [Suspect]
     Active Substance: SODIUM OXYBATE
     Dosage: DOSE ADJUSTMENTS
     Route: 048
     Dates: start: 201605, end: 2016
  2. BIOTIN [Concomitant]
     Active Substance: BIOTIN
     Indication: HAIR DISORDER
  3. MULTIVITAMIN [Concomitant]
     Active Substance: VITAMINS
     Indication: SUPPLEMENTATION THERAPY
  4. VITAMIN D3 [Concomitant]
     Active Substance: CHOLECALCIFEROL
     Indication: PRODUCT USED FOR UNKNOWN INDICATION
  5. AMBIEN CR [Concomitant]
     Active Substance: ZOLPIDEM TARTRATE
     Indication: SLEEP DISORDER
  6. SIMVASTATIN. [Concomitant]
     Active Substance: SIMVASTATIN
     Indication: BLOOD CHOLESTEROL
  7. CINNAMON. [Concomitant]
     Active Substance: CINNAMON
     Indication: BLOOD GLUCOSE INCREASED
  8. FISH OIL [Concomitant]
     Active Substance: FISH OIL
     Indication: SUPPLEMENTATION THERAPY
  9. PYRIDOXINE [Concomitant]
     Active Substance: PYRIDOXINE
     Indication: SUPPLEMENTATION THERAPY
  10. TYLENOL EXTRA STRENGTH [Concomitant]
     Active Substance: ACETAMINOPHEN
  11. PREVACID [Concomitant]
     Active Substance: LANSOPRAZOLE
     Indication: GASTROOESOPHAGEAL REFLUX DISEASE
  12. ACIDOPHILUS [Concomitant]
     Active Substance: LACTOBACILLUS ACIDOPHILUS
     Indication: PROBIOTIC THERAPY
  13. VITAMIN B12 [Concomitant]
     Active Substance: CYANOCOBALAMIN
     Indication: SUPPLEMENTATION THERAPY
  14. ZINC [Concomitant]
     Active Substance: ZINC\ZINC CHLORIDE
     Indication: SUPPLEMENTATION THERAPY
  15. XANAX [Concomitant]
     Active Substance: ALPRAZOLAM
  16. TRAMADOL HCL [Concomitant]
     Active Substance: TRAMADOL HYDROCHLORIDE
  17. STOOL SOFTENER (DOCUSATE CALCIUM) [Concomitant]
     Active Substance: DOCUSATE CALCIUM
     Indication: CONSTIPATION
  18. VITAMIN E [Concomitant]
     Active Substance: .ALPHA.-TOCOPHEROL
     Indication: SKIN DISORDER
  19. PERCOCET [Concomitant]
     Active Substance: ACETAMINOPHEN\OXYCODONE HYDROCHLORIDE
  20. TOPROL XL [Concomitant]
     Active Substance: METOPROLOL SUCCINATE
  21. LORTAB [Concomitant]
     Active Substance: ACETAMINOPHEN\HYDROCODONE BITARTRATE
  22. XYREM [Suspect]
     Active Substance: SODIUM OXYBATE
     Dosage: 3 G, BID
     Route: 048
     Dates: start: 2016
  23. IMITREX [Concomitant]
     Active Substance: SUMATRIPTAN SUCCINATE
     Indication: MIGRAINE
  24. SUDAFED [Concomitant]
     Active Substance: PSEUDOEPHEDRINE HYDROCHLORIDE
     Indication: SINUS HEADACHE
  25. ZYRTEC [Concomitant]
     Active Substance: CETIRIZINE HYDROCHLORIDE
     Indication: HYPERSENSITIVITY
  26. XYREM [Suspect]
     Active Substance: SODIUM OXYBATE
     Indication: FIBROMYALGIA
     Dosage: 2.25 G, BID
     Route: 048
     Dates: start: 201605, end: 201605
  27. FENOFIBRATE. [Concomitant]
     Active Substance: FENOFIBRATE
     Indication: BLOOD CHOLESTEROL

REACTIONS (4)
  - Weight decreased [Unknown]
  - Pre-existing condition improved [Unknown]
  - Therapeutic response unexpected [Unknown]
  - Asthenia [Recovered/Resolved]

NARRATIVE: CASE EVENT DATE: 2016
